FAERS Safety Report 22132240 (Version 1)
Quarter: 2023Q1

REPORT INFORMATION
  Report Type: Report from Study
  Country: AE (occurrence: None)
  Receive Date: 20230323
  Receipt Date: 20230323
  Transmission Date: 20230418
  Serious: Yes (Life-Threatening, Hospitalization)
  Sender: FDA-Public Use
  Company Number: 2023A065343

PATIENT
  Age: 14 Year
  Sex: Male
  Weight: 40.3 kg

DRUGS (1)
  1. CILGAVIMAB\TIXAGEVIMAB [Suspect]
     Active Substance: CILGAVIMAB\TIXAGEVIMAB
     Indication: COVID-19 prophylaxis
     Dosage: 3 ML
     Route: 030
     Dates: start: 20220929

REACTIONS (1)
  - Transplant rejection [Recovered/Resolved]

NARRATIVE: CASE EVENT DATE: 20221110
